FAERS Safety Report 14022950 (Version 1)
Quarter: 2017Q3

REPORT INFORMATION
  Report Type: Spontaneous
  Country: US (occurrence: US)
  Receive Date: 20170928
  Receipt Date: 20170928
  Transmission Date: 20171128
  Serious: No
  Sender: FDA-Public Use
  Company Number: US-SA-2016SA192240

PATIENT
  Sex: Female

DRUGS (12)
  1. PROVIGIL [Concomitant]
     Active Substance: MODAFINIL
  2. LIPITOR [Concomitant]
     Active Substance: ATORVASTATIN CALCIUM
  3. LOVENOX [Concomitant]
     Active Substance: ENOXAPARIN SODIUM
  4. ENABLEX [Concomitant]
     Active Substance: DARIFENACIN HYDROBROMIDE
  5. AUBAGIO [Suspect]
     Active Substance: TERIFLUNOMIDE
     Indication: MULTIPLE SCLEROSIS
     Route: 048
     Dates: start: 20160406
  6. GABAPENTIN. [Concomitant]
     Active Substance: GABAPENTIN
  7. LISINOPRIL. [Concomitant]
     Active Substance: LISINOPRIL
  8. AUBAGIO [Suspect]
     Active Substance: TERIFLUNOMIDE
     Indication: MULTIPLE SCLEROSIS
     Route: 048
     Dates: start: 20160311
  9. VITAMIN B12 [Concomitant]
     Active Substance: CYANOCOBALAMIN
  10. TAMOXIFEN [Concomitant]
     Active Substance: TAMOXIFEN
  11. ZYRTEC [Concomitant]
     Active Substance: CETIRIZINE HYDROCHLORIDE
  12. BACLOFEN. [Concomitant]
     Active Substance: BACLOFEN

REACTIONS (3)
  - Gait disturbance [Unknown]
  - Asthenia [Unknown]
  - Pruritus [Unknown]

NARRATIVE: CASE EVENT DATE: 2016
